FAERS Safety Report 17689845 (Version 1)
Quarter: 2020Q2

REPORT INFORMATION
  Report Type: Spontaneous
  Country: US (occurrence: US)
  Receive Date: 20200421
  Receipt Date: 20200421
  Transmission Date: 20200714
  Serious: Yes (Other)
  Sender: FDA-Public Use
  Company Number: US-UCBSA-2020016227

PATIENT
  Age: 7 Year
  Sex: Female
  Weight: 41 kg

DRUGS (4)
  1. TOPIRAMATE. [Concomitant]
     Active Substance: TOPIRAMATE
     Indication: PRODUCT USED FOR UNKNOWN INDICATION
  2. BRIVIACT [Suspect]
     Active Substance: BRIVARACETAM
     Indication: EPILEPSY
     Dosage: 25 MILLIGRAM, ONCE DAILY (QD)
     Dates: start: 20200226, end: 20200228
  3. BRIVIACT [Suspect]
     Active Substance: BRIVARACETAM
     Indication: PETIT MAL EPILEPSY
     Dosage: 12.5MG ONCE DAILY (HALF TABLET OF 25MG)
     Dates: start: 20200303
  4. CLOBAZAM. [Concomitant]
     Active Substance: CLOBAZAM
     Indication: PRODUCT USED FOR UNKNOWN INDICATION

REACTIONS (8)
  - Coordination abnormal [Not Recovered/Not Resolved]
  - Off label use [Unknown]
  - Underdose [Unknown]
  - Headache [Not Recovered/Not Resolved]
  - Abnormal behaviour [Recovered/Resolved]
  - Mood altered [Recovered/Resolved]
  - Seizure [Recovered/Resolved]
  - Mood swings [Recovered/Resolved]

NARRATIVE: CASE EVENT DATE: 20200226
